FAERS Safety Report 25999682 (Version 1)
Quarter: 2025Q4

REPORT INFORMATION
  Report Type: Spontaneous
  Country: NP (occurrence: NP)
  Receive Date: 20251105
  Receipt Date: 20251105
  Transmission Date: 20260118
  Serious: Yes (Death, Hospitalization, Other)
  Sender: STRIDES
  Company Number: NP-STRIDES ARCOLAB LIMITED-2025SP013697

PATIENT
  Age: 62 Year
  Sex: Male

DRUGS (1)
  1. METHOTREXATE [Suspect]
     Active Substance: METHOTREXATE
     Indication: Rheumatoid arthritis
     Dosage: 10 MILLIGRAM, DAILY
     Route: 065

REACTIONS (13)
  - Toxicity to various agents [Fatal]
  - Accidental poisoning [Fatal]
  - Haemorrhage intracranial [Fatal]
  - Lip haemorrhage [Unknown]
  - Oral mucosa erosion [Unknown]
  - Skin hyperpigmentation [Unknown]
  - Papule [Unknown]
  - Skin plaque [Unknown]
  - Target skin lesion [Unknown]
  - Mouth ulceration [Unknown]
  - Thrombocytopenia [Unknown]
  - Pancytopenia [Unknown]
  - Erythema [Unknown]
